FAERS Safety Report 17576323 (Version 1)
Quarter: 2020Q1

REPORT INFORMATION
  Report Type: Spontaneous
  Country: US (occurrence: US)
  Receive Date: 20200318
  Receipt Date: 20200318
  Transmission Date: 20200409
  Serious: Yes (Hospitalization)
  Sender: FDA-Public Use
  Company Number: None

PATIENT
  Age: 42 Year
  Sex: Female

DRUGS (3)
  1. MORPHINE [Concomitant]
     Active Substance: MORPHINE
  2. HYDROXYDREA [Concomitant]
  3. DEFERASIROX 360MG TABLETS [Suspect]
     Active Substance: DEFERASIROX
     Indication: SICKLE CELL ANAEMIA
     Route: 048
     Dates: start: 20200118

REACTIONS (2)
  - Sickle cell anaemia [None]
  - Therapy cessation [None]

NARRATIVE: CASE EVENT DATE: 20200316
